FAERS Safety Report 21630163 (Version 1)
Quarter: 2022Q4

REPORT INFORMATION
  Report Type: Spontaneous
  Country: US (occurrence: US)
  Receive Date: 20221122
  Receipt Date: 20221122
  Transmission Date: 20230113
  Serious: No
  Sender: FDA-Public Use
  Company Number: US-JNJFOC-20221135844

PATIENT
  Age: 74 Year

DRUGS (1)
  1. IMODIUM [Suspect]
     Active Substance: LOPERAMIDE HYDROCHLORIDE
     Indication: Coeliac disease
     Route: 048

REACTIONS (3)
  - Product packaging difficult to open [Unknown]
  - Product storage error [Unknown]
  - Wrong technique in product usage process [Unknown]
